FAERS Safety Report 7631777-X (Version None)
Quarter: 2011Q3

REPORT INFORMATION
  Report Type: 
  Country: None (occurrence: None)
  Receive Date: 20110725
  Receipt Date: 20110314
  Transmission Date: 20111222
  Serious: Yes (Hospitalization)
  Sender: FDA-Public Use
  Company Number: US-BRISTOL-MYERS SQUIBB COMPANY-15606858

PATIENT
  Sex: Female

DRUGS (2)
  1. COUMADIN [Suspect]
  2. DIFLUCAN [Concomitant]

REACTIONS (2)
  - ADVERSE EVENT [None]
  - FUNGAL INFECTION [None]
